FAERS Safety Report 4752059-X (Version None)
Quarter: 2005Q3

REPORT INFORMATION
  Report Type: 
  Country: None (occurrence: None)
  Receive Date: 20050822
  Receipt Date: 20050530
  Transmission Date: 20060218
  Serious: No
  Sender: FDA-Public Use
  Company Number: PHEH2005US06103

PATIENT
  Sex: Female

DRUGS (1)
  1. ZELNORM [Suspect]
     Indication: CONSTIPATION
     Dosage: ORAL
     Route: 048

REACTIONS (6)
  - CONDITION AGGRAVATED [None]
  - CONSTIPATION [None]
  - GASTROINTESTINAL PAIN [None]
  - HYPERHIDROSIS [None]
  - HYPERSENSITIVITY [None]
  - URINE OUTPUT INCREASED [None]
